FAERS Safety Report 4526470-6 (Version None)
Quarter: 2004Q4

REPORT INFORMATION
  Report Type: 
  Country: None (occurrence: None)
  Receive Date: 20041210
  Receipt Date: 20041130
  Transmission Date: 20050328
  Serious: Yes (Life-Threatening)
  Sender: FDA-Public Use
  Company Number: HQWYE722301DEC04

PATIENT
  Age: 63 Year
  Sex: Female

DRUGS (6)
  1. CORDARONE [Suspect]
     Dosage: 200 MG 1X PER 1 DAY ORAL
     Route: 048
  2. METOPROLOL TARTRATE [Concomitant]
  3. COVERSUM (PERINDOPRIL) [Concomitant]
  4. SORTIS ^GOEDECKE^ (ATORVASTATIN CALCIUM) [Concomitant]
  5. PANTOZOL (PANTOPRAZOLE SODIUM) [Concomitant]
  6. ASPIRIN [Concomitant]

REACTIONS (3)
  - NEUROENDOCRINE CARCINOMA [None]
  - NEUROENDOCRINE CARCINOMA OF THE SKIN [None]
  - THYROID GLAND CANCER [None]
